FAERS Safety Report 17582280 (Version 7)
Quarter: 2020Q3

REPORT INFORMATION
  Report Type: Spontaneous
  Country: US (occurrence: US)
  Receive Date: 20200325
  Receipt Date: 20200818
  Transmission Date: 20201102
  Serious: No
  Sender: FDA-Public Use
  Company Number: US-ACTELION-A-NJ2020-202843

PATIENT
  Age: 76 Year
  Sex: Male
  Weight: 77.55 kg

DRUGS (4)
  1. REVATIO [Concomitant]
     Active Substance: SILDENAFIL CITRATE
  2. OPSUMIT [Suspect]
     Active Substance: MACITENTAN
     Indication: PULMONARY ARTERIAL HYPERTENSION
     Dosage: 10 MG, QD
     Route: 048
  3. VELETRI [Suspect]
     Active Substance: EPOPROSTENOL
     Indication: PULMONARY ARTERIAL HYPERTENSION
     Dosage: 29 NG/KG, PER MIN
     Route: 042
  4. VELETRI [Suspect]
     Active Substance: EPOPROSTENOL
     Dosage: 29 NG/KG, PER MIN
     Route: 042

REACTIONS (18)
  - Cough [Unknown]
  - Productive cough [Unknown]
  - Weight decreased [Unknown]
  - Paranasal sinus hypersecretion [Unknown]
  - Nasal septum deviation [Unknown]
  - Upper-airway cough syndrome [Unknown]
  - Dyspnoea [Unknown]
  - Secretion discharge [Unknown]
  - Vomiting [Unknown]
  - Constipation [Unknown]
  - Epistaxis [Unknown]
  - Nasal congestion [Unknown]
  - Abdominal pain upper [Unknown]
  - Sinus congestion [Not Recovered/Not Resolved]
  - Nausea [Unknown]
  - Mucosal dryness [Unknown]
  - Sinus headache [Unknown]
  - Blood glucose decreased [Unknown]

NARRATIVE: CASE EVENT DATE: 20200315
